FAERS Safety Report 18860826 (Version 7)
Quarter: 2022Q2

REPORT INFORMATION
  Report Type: Report from Study
  Country: US (occurrence: US)
  Receive Date: 20210208
  Receipt Date: 20220607
  Transmission Date: 20220721
  Serious: Yes (Other)
  Sender: FDA-Public Use
  Company Number: US-NOVARTISPH-NVSC2021US023276

PATIENT
  Sex: Male

DRUGS (2)
  1. GILENYA [Suspect]
     Active Substance: FINGOLIMOD HYDROCHLORIDE
     Indication: Multiple sclerosis
     Dosage: 0.5 MG, QD
     Route: 048
  2. GILENYA [Suspect]
     Active Substance: FINGOLIMOD HYDROCHLORIDE
     Dosage: 0.5 MG, QD
     Route: 048

REACTIONS (9)
  - Mental impairment [Unknown]
  - Memory impairment [Unknown]
  - Gait disturbance [Unknown]
  - Pain in extremity [Unknown]
  - Dysarthria [Unknown]
  - Posture abnormal [Unknown]
  - Speech disorder [Unknown]
  - Insomnia [Unknown]
  - Product dose omission issue [Unknown]
